FAERS Safety Report 4582761-4 (Version None)
Quarter: 2005Q1

REPORT INFORMATION
  Report Type: 
  Country: None (occurrence: None)
  Receive Date: 20050121
  Receipt Date: 20041220
  Transmission Date: 20050727
  Serious: Yes (Other)
  Sender: FDA-Public Use
  Company Number: 2004116388

PATIENT
  Age: 47 Year
  Sex: Female
  Weight: 148.3262 kg

DRUGS (5)
  1. RELPAX [Suspect]
     Indication: CLUSTER HEADACHE
     Dosage: (40 GM, AS NEEDED), ORAL
     Route: 048
     Dates: start: 20040101, end: 20041216
  2. BUPROPION HYDROCHLORIDE [Concomitant]
  3. LEVOTHYROXINE SODIUM [Concomitant]
  4. LAMOTRIGINE [Concomitant]
  5. LANSOPRAZOLE [Concomitant]

REACTIONS (3)
  - CONDITION AGGRAVATED [None]
  - DRUG INEFFECTIVE [None]
  - HEADACHE [None]
